FAERS Safety Report 6419313-7 (Version None)
Quarter: 2009Q4

REPORT INFORMATION
  Report Type: 
  Country: None (occurrence: None)
  Receive Date: 20091029
  Receipt Date: 20091026
  Transmission Date: 20100525
  Serious: Yes (Other)
  Sender: FDA-Public Use
  Company Number: US-BRISTOL-MYERS SQUIBB COMPANY-14684914

PATIENT
  Age: 66 Year
  Sex: Female
  Weight: 92 kg

DRUGS (20)
  1. ORENCIA [Suspect]
     Indication: RHEUMATOID ARTHRITIS
     Dosage: RESTARTED ON 01-SEP-09; INITIALLY Q4WEEK LATER SWITCHED TO QMONTH
     Route: 042
     Dates: start: 20060101
  2. IMURAN [Concomitant]
     Dosage: 17MAR09,14APR09,07JUL09,01SEP09,15OCT09 BID,TQD
  3. NEXIUM [Concomitant]
     Dosage: 17MAR09,14APR09,07JUL09,01SEP09,15OCT09
  4. DIOVAN HCT [Concomitant]
     Dosage: 17MAR09,14APR09,07JUL09,01SEP09,15OCT09
  5. DITROPAN XL [Concomitant]
     Dosage: 17MAR09,14APR09
  6. THYROID TAB [Concomitant]
     Dosage: 17MAR09,14APR09
  7. FOLIC ACID [Concomitant]
     Dosage: 17MAR09,14APR09,07JUL09,01SEP09,15OCT09 TQD
  8. COREG [Concomitant]
     Dosage: 17MAR09,14APR09,07JUL09,01SEP09,15OCT09
  9. POTASSIUM CHLORIDE [Concomitant]
     Dosage: 17MAR09,14APR09
  10. LESCOL [Concomitant]
     Dosage: 17MAR09,14APR09,01SEP09,15OCT09 07JUL09:40 MG QD
  11. NORVASC [Concomitant]
     Dosage: 17MAR09,14APR09,07JUL09,01SEP09,15OCT09
  12. MULTI-VITAMIN [Concomitant]
     Dosage: 17MAR09,14APR09,07JUL09,01SEP09,15OCT09
  13. TUMS [Concomitant]
     Dosage: 2-4QD 17MAR09,14APR09,07JUL09,01SEP09
  14. VITAMIN D3 [Concomitant]
     Dosage: 17MAR09,14APR09,07JUL09,01SEP09,15OCT09
  15. MYCELEX [Concomitant]
     Dosage: 14APR09
  16. MAGIC MOUTHWASH [Concomitant]
     Dosage: 17MAR09,14APR09 PRN
  17. ZETIA [Concomitant]
     Dosage: 17MAR09,14APR09,07JUL09,01SEP09,15OCT09
  18. SYNTHROID [Concomitant]
     Dosage: 07JUL09,01SEP09,15OCT09
  19. MOTRIN [Concomitant]
     Dosage: 07JUL09
  20. CENTRUM [Concomitant]
     Dates: start: 20091015

REACTIONS (1)
  - TONGUE NEOPLASM MALIGNANT STAGE UNSPECIFIED [None]
